FAERS Safety Report 6426670-4 (Version None)
Quarter: 2009Q4

REPORT INFORMATION
  Report Type: 
  Country: None (occurrence: None)
  Receive Date: 20091016
  Receipt Date: 20090827
  Transmission Date: 20100525
  Serious: Yes (Other)
  Sender: FDA-Public Use
  Company Number: 86504

PATIENT
  Age: 58 Year
  Sex: Male
  Weight: 103.4201 kg

DRUGS (1)
  1. LEUCOVORIN CALCIUM [Suspect]
     Indication: COLON CANCER
     Dosage: 10/MG/ML
     Dates: start: 20080415

REACTIONS (1)
  - EXTRAVASATION [None]
